FAERS Safety Report 6701206-9 (Version None)
Quarter: 2010Q2

REPORT INFORMATION
  Report Type: 
  Country: None (occurrence: None)
  Receive Date: 20100427
  Receipt Date: 20100416
  Transmission Date: 20101027
  Serious: Yes (Other)
  Sender: FDA-Public Use
  Company Number: 2010EU001547

PATIENT
  Age: 40 Month
  Sex: Female

DRUGS (4)
  1. TACOLIMUS SYSTEMIC (TACROLIMUS)           FORMULATION UNKNOWN [Suspect]
     Indication: IMMUNOSUPPRESSION
     Dosage: 0.15 MG/KG, BID, ORAL
     Route: 048
     Dates: start: 19970101
  2. ANTI-THYMOCYTE GLOBULIN NOS [Suspect]
     Indication: IMMUNOSUPPRESSION
     Dosage: IV NOS
     Route: 042
  3. PREDNISOLONE [Suspect]
     Indication: IMMUNOSUPPRESSION
  4. AZATHIOPRINE [Suspect]
     Indication: IMMUNOSUPPRESSION

REACTIONS (7)
  - ANAPHYLACTIC REACTION [None]
  - ANGIOEDEMA [None]
  - CHEILITIS [None]
  - ORAL DISORDER [None]
  - RESPIRATORY DISORDER [None]
  - TONGUE DISORDER [None]
  - URTICARIA [None]
